FAERS Safety Report 13549110 (Version 1)
Quarter: 2017Q2

REPORT INFORMATION
  Report Type: Spontaneous
  Country: US (occurrence: US)
  Receive Date: 20170516
  Receipt Date: 20170516
  Transmission Date: 20170830
  Serious: Yes (Other)
  Sender: FDA-Public Use
  Company Number: US-AUROBINDO-AUR-APL-2017-32186

PATIENT
  Age: 53 Year
  Sex: Male

DRUGS (12)
  1. BUPROPION. [Concomitant]
     Active Substance: BUPROPION
     Indication: SOCIAL ANXIETY DISORDER
     Dosage: 300 MG, UNK
     Route: 065
  2. GABAPENTIN. [Concomitant]
     Active Substance: GABAPENTIN
     Indication: MAJOR DEPRESSION
     Dosage: 1200 MG, UNK
     Route: 065
  3. QUETIAPINE 50MG [Suspect]
     Active Substance: QUETIAPINE
     Indication: OBSESSIVE-COMPULSIVE DISORDER
     Dosage: 50 MG, ONCE A DAY NIGHTLY
     Route: 065
  4. GABAPENTIN. [Concomitant]
     Active Substance: GABAPENTIN
     Indication: SOCIAL ANXIETY DISORDER
     Dosage: 1200 MG, UNK
     Route: 065
  5. BUPROPION. [Concomitant]
     Active Substance: BUPROPION
     Indication: MAJOR DEPRESSION
     Dosage: 300 MG, UNK
     Route: 065
  6. BUPROPION. [Concomitant]
     Active Substance: BUPROPION
     Indication: OBSESSIVE-COMPULSIVE DISORDER
     Dosage: 300 MG, UNK
     Route: 065
  7. BUPROPION. [Concomitant]
     Active Substance: BUPROPION
  8. QUETIAPINE 50MG [Suspect]
     Active Substance: QUETIAPINE
     Indication: SOCIAL ANXIETY DISORDER
     Dosage: 50 MG, ONCE A DAY NIGHTLY
     Route: 065
  9. QUETIAPINE 50MG [Suspect]
     Active Substance: QUETIAPINE
     Indication: MAJOR DEPRESSION
     Dosage: 50 MG, ONCE A DAY NIGHTLY
     Route: 065
  10. BUPROPION. [Concomitant]
     Active Substance: BUPROPION
     Dosage: 450 MG, UNK
     Route: 065
  11. GABAPENTIN. [Concomitant]
     Active Substance: GABAPENTIN
     Indication: OBSESSIVE-COMPULSIVE DISORDER
     Dosage: 1200 MG, UNK
     Route: 065
  12. BUPROPION. [Concomitant]
     Active Substance: BUPROPION
     Dosage: 450 MG, UNK
     Route: 065

REACTIONS (1)
  - Oculogyric crisis [Recovering/Resolving]
